FAERS Safety Report 7354610-2 (Version None)
Quarter: 2011Q1

REPORT INFORMATION
  Report Type: 
  Country: None (occurrence: None)
  Receive Date: 20110316
  Receipt Date: 20110314
  Transmission Date: 20110831
  Serious: No
  Sender: FDA-Public Use
  Company Number: US-PFIZER INC-2011026010

PATIENT
  Sex: Female

DRUGS (1)
  1. PRISTIQ [Suspect]
     Dosage: UNKNOWN
     Route: 048
     Dates: end: 20110101

REACTIONS (4)
  - NEUROPATHY PERIPHERAL [None]
  - UNEVALUABLE EVENT [None]
  - DIZZINESS [None]
  - MUSCULAR WEAKNESS [None]
